FAERS Safety Report 6859170-8 (Version None)
Quarter: 2010Q3

REPORT INFORMATION
  Report Type: 
  Country: None (occurrence: None)
  Receive Date: 20100719
  Receipt Date: 20080225
  Transmission Date: 20110219
  Serious: Yes (Other)
  Sender: FDA-Public Use
  Company Number: US-PFIZER INC-2008019157

PATIENT
  Sex: Female
  Weight: 52.2 kg

DRUGS (8)
  1. CHANTIX [Suspect]
     Indication: SMOKING CESSATION THERAPY
     Route: 048
     Dates: start: 20080218, end: 20080224
  2. LYRICA [Concomitant]
  3. XANAX [Concomitant]
  4. ESTROGENS ESTERIFIED [Concomitant]
  5. LOMOTIL [Concomitant]
  6. ZOFRAN [Concomitant]
  7. ANTI-ASTHMATICS [Concomitant]
  8. ALL OTHER THERAPEUTIC PRODUCTS [Concomitant]

REACTIONS (3)
  - NIGHTMARE [None]
  - SUICIDAL IDEATION [None]
  - SUICIDE ATTEMPT [None]
